FAERS Safety Report 7786725-9 (Version None)
Quarter: 2011Q3

REPORT INFORMATION
  Report Type: 
  Country: None (occurrence: None)
  Receive Date: 20110929
  Receipt Date: 20110926
  Transmission Date: 20111222
  Serious: Yes (Other)
  Sender: FDA-Public Use
  Company Number: US-PFIZER INC-2011229565

PATIENT
  Sex: Male
  Weight: 90.703 kg

DRUGS (8)
  1. ACETYLSALICYLIC ACID [Concomitant]
     Indication: CARDIAC DISORDER
     Dosage: UNK, 30 MIN BEFORE NIASPAN
     Route: 048
  2. ATENOLOL [Concomitant]
     Indication: HYPERTENSION
     Dosage: UNK
     Route: 048
  3. CELECOXIB [Concomitant]
     Indication: ARTHRITIS
     Dosage: UNK
     Route: 048
  4. NIASPAN [Suspect]
     Indication: CORONARY ARTERY DISEASE
     Dosage: 500 MG, 2X/DAY AT BEDTIME
     Route: 048
     Dates: start: 20110501
  5. GABAPENTIN [Concomitant]
     Indication: RESTLESS LEGS SYNDROME
     Dosage: UNK
     Route: 048
  6. LIPITOR [Suspect]
     Dosage: UNK
     Dates: start: 20070101, end: 20101101
  7. CLOPIDOGREL SULFATE [Concomitant]
     Indication: CARDIAC DISORDER
     Dosage: UNK
     Route: 048
  8. NIASPAN [Suspect]
     Indication: HIGH DENSITY LIPOPROTEIN DECREASED
     Dosage: 500 MG, 1X/DAY AT BEDTIME
     Route: 048
     Dates: start: 20071101, end: 20101101

REACTIONS (6)
  - CORONARY ARTERY OCCLUSION [None]
  - HIGH DENSITY LIPOPROTEIN DECREASED [None]
  - PAIN [None]
  - FLUSHING [None]
  - MUSCULAR WEAKNESS [None]
  - PAIN IN EXTREMITY [None]
